FAERS Safety Report 18349726 (Version 4)
Quarter: 2021Q2

REPORT INFORMATION
  Report Type: Spontaneous
  Country: CA (occurrence: CA)
  Receive Date: 20201006
  Receipt Date: 20210630
  Transmission Date: 20210717
  Serious: Yes (Other)
  Sender: FDA-Public Use
  Company Number: CA-PFIZER INC-2019540870

PATIENT
  Age: 81 Year
  Sex: Female

DRUGS (3)
  1. TRAMADOL. [Concomitant]
     Active Substance: TRAMADOL
     Indication: PAIN
     Dosage: UNK, AS NEEDED
  2. XELJANZ [Suspect]
     Active Substance: TOFACITINIB CITRATE
     Dosage: 5 MG, 1X/DAY
     Route: 048
     Dates: start: 201912, end: 20210615
  3. XELJANZ [Suspect]
     Active Substance: TOFACITINIB CITRATE
     Indication: RHEUMATOID ARTHRITIS
     Dosage: 5 MG, 2X/DAY
     Route: 048
     Dates: start: 20191122, end: 201912

REACTIONS (7)
  - Renal impairment [Unknown]
  - Intentional product misuse [Unknown]
  - Abdominal discomfort [Unknown]
  - Sensitivity to weather change [Unknown]
  - Vision blurred [Unknown]
  - Rheumatoid arthritis [Unknown]
  - Tinnitus [Unknown]
